FAERS Safety Report 8450547-6 (Version None)
Quarter: 2012Q2

REPORT INFORMATION
  Report Type: 
  Country: None (occurrence: None)
  Receive Date: 20120614
  Receipt Date: 20120614
  Transmission Date: 20120825
  Serious: Yes (Other)
  Sender: FDA-Public Use
  Company Number: None

PATIENT
  Sex: Male

DRUGS (6)
  1. GABAPENTIN [Concomitant]
  2. HYDROCLOPHIAZIDE [Concomitant]
  3. DONEPEZIL HCL [Suspect]
     Indication: DEMENTIA
     Dosage: 10 MG ONCE A DAY PO
     Route: 048
  4. OMPRASZOLE [Concomitant]
  5. B12 SUPPLEMENT [Concomitant]
  6. LISINDEL [Concomitant]

REACTIONS (2)
  - HALLUCINATION, VISUAL [None]
  - THINKING ABNORMAL [None]
